FAERS Safety Report 9372853 (Version 2)
Quarter: 2013Q3

REPORT INFORMATION
  Report Type: Report from Study
  Country: CA (occurrence: CA)
  Receive Date: 20130627
  Receipt Date: 20130718
  Transmission Date: 20140515
  Serious: Yes (Other)
  Sender: FDA-Public Use
  Company Number: PHHY2013CA065424

PATIENT
  Age: 62 Year
  Sex: Female

DRUGS (12)
  1. CLOZARIL [Suspect]
     Dosage: UNK UKN, UNK
     Route: 048
     Dates: start: 20130311
  2. CLOZARIL [Suspect]
     Dosage: 25 MG, QD
     Route: 048
     Dates: start: 20130514
  3. FOLIC ACID [Concomitant]
     Dosage: 5 MG, QD
     Dates: start: 20130514, end: 20130617
  4. LEVODOPA-CARBIDOPA [Concomitant]
     Dosage: 1 DF, TID
     Dates: start: 20130514, end: 20130617
  5. LEVOTHYROXIN [Concomitant]
     Dosage: 0.1 MG, QD
     Dates: start: 20130514, end: 20130617
  6. MUL-TAB [Concomitant]
     Dosage: 1 DF, UNK
     Dates: start: 20130514, end: 20130617
  7. SENNOSIDES A+B [Concomitant]
     Dosage: 8.6 MG (TWO TAB DAILY AT BED TIME), UNK
     Dates: start: 20130514, end: 20130617
  8. VITAMIN D 2000 [Concomitant]
     Dosage: 2 DF (2000 UNITS), DAILY
     Dates: start: 20130514, end: 20130617
  9. BETAMETHA [Concomitant]
     Dosage: APPLY DAILY, UNK
     Dates: start: 20130514, end: 20130522
  10. PALIPERIDONE PALMITATE [Concomitant]
     Dosage: 1 DF, EVERY 4 WEEKS
     Dates: start: 20130514, end: 20130618
  11. POLYETHYLENE GLYCOL 3350 [Concomitant]
     Dosage: 17 GM IN 250 ML WATER/COFFEE/JUICE, DAILY
     Route: 048
     Dates: start: 20130514
  12. LORAZEPAM [Concomitant]
     Dosage: 0.5- 1 MG, BID, AS NEEDED
     Route: 048
     Dates: start: 20130516, end: 20130516

REACTIONS (7)
  - Parkinson^s disease [Not Recovered/Not Resolved]
  - Hypothyroidism [Not Recovered/Not Resolved]
  - Hallucination, auditory [Not Recovered/Not Resolved]
  - Creatinine renal clearance decreased [Unknown]
  - Quality of life decreased [Unknown]
  - White blood cell count abnormal [Not Recovered/Not Resolved]
  - Neutrophil count abnormal [Not Recovered/Not Resolved]
